FAERS Safety Report 8245095-2 (Version None)
Quarter: 2012Q1

REPORT INFORMATION
  Report Type: 
  Country: None (occurrence: None)
  Receive Date: 20120329
  Receipt Date: 20120323
  Transmission Date: 20120608
  Serious: Yes (Hospitalization)
  Sender: FDA-Public Use
  Company Number: US-GLAXOSMITHKLINE-A0971519A

PATIENT
  Sex: Female

DRUGS (1)
  1. INNOPRAN XL [Suspect]
     Indication: PRODUCT USED FOR UNKNOWN INDICATION
     Dates: start: 20110812

REACTIONS (1)
  - CEREBROVASCULAR ACCIDENT [None]
